FAERS Safety Report 6694540-2 (Version None)
Quarter: 2010Q2

REPORT INFORMATION
  Report Type: 
  Country: None (occurrence: None)
  Receive Date: 20100423
  Receipt Date: 20100412
  Transmission Date: 20101027
  Serious: Yes (Life-Threatening, Hospitalization, Other)
  Sender: FDA-Public Use
  Company Number: GB-TEVA-228900ISR

PATIENT
  Age: 36 Year
  Sex: Male

DRUGS (3)
  1. CISPLATIN [Suspect]
     Indication: TESTICULAR EMBRYONAL CARCINOMA
  2. ETOPOSIDE [Suspect]
  3. BLEOMYCIN [Suspect]

REACTIONS (2)
  - CAROTID ARTERY THROMBOSIS [None]
  - PULMONARY EMBOLISM [None]
